FAERS Safety Report 5936671-8 (Version None)
Quarter: 2008Q4

REPORT INFORMATION
  Report Type: 
  Country: None (occurrence: None)
  Receive Date: 20081030
  Receipt Date: 20081020
  Transmission Date: 20090506
  Serious: Yes (Hospitalization)
  Sender: FDA-Public Use
  Company Number: CA-ELI_LILLY_AND_COMPANY-CA200809004142

PATIENT
  Age: 60 Year
  Sex: Female

DRUGS (10)
  1. FORTEO [Suspect]
     Indication: OSTEOPOROSIS
     Dosage: 20 UG, DAILY (1/D)
     Route: 058
     Dates: start: 20080529
  2. METHOTREXATE [Concomitant]
  3. PREDNISONE TAB [Concomitant]
  4. CELEBREX [Concomitant]
  5. PLAQUENIL [Concomitant]
  6. NEXIUM [Concomitant]
  7. NORVASC [Concomitant]
  8. VITAMIN E [Concomitant]
  9. FOLIC ACID [Concomitant]
  10. CALCIUM W/VITAMIN D NOS [Concomitant]

REACTIONS (5)
  - ARTHRALGIA [None]
  - CELLULITIS [None]
  - HERPES ZOSTER [None]
  - JOINT SWELLING [None]
  - PAIN IN EXTREMITY [None]
